FAERS Safety Report 12884392 (Version 1)
Quarter: 2016Q4

REPORT INFORMATION
  Report Type: Spontaneous
  Country: US (occurrence: US)
  Receive Date: 20161026
  Receipt Date: 20161026
  Transmission Date: 20170207
  Serious: No
  Sender: FDA-Public Use
  Company Number: US-ASTRAZENECA-2016SF08575

PATIENT
  Sex: Male
  Weight: 117.9 kg

DRUGS (2)
  1. BABY ASPIRIN [Concomitant]
     Active Substance: ASPIRIN
     Route: 048
     Dates: start: 20160913
  2. BRILINTA [Suspect]
     Active Substance: TICAGRELOR
     Indication: STENT PLACEMENT
     Route: 048
     Dates: start: 20160913

REACTIONS (5)
  - Frustration tolerance decreased [Unknown]
  - Dyspnoea [Unknown]
  - Blood urine present [Unknown]
  - Dizziness [Unknown]
  - Muscle spasms [Unknown]
